FAERS Safety Report 7229210-5 (Version None)
Quarter: 2011Q1

REPORT INFORMATION
  Report Type: 
  Country: None (occurrence: None)
  Receive Date: 20110117
  Receipt Date: 20110107
  Transmission Date: 20110831
  Serious: Yes (Other)
  Sender: FDA-Public Use
  Company Number: US-JNJFOC-20110103849

PATIENT

DRUGS (2)
  1. EZETIMIBE [Suspect]
     Indication: ANTIFUNGAL PROPHYLAXIS
     Route: 065
  2. KETOCONAZOLE [Suspect]
     Indication: ANTIFUNGAL PROPHYLAXIS
     Route: 065

REACTIONS (1)
  - LIVER DISORDER [None]
